FAERS Safety Report 23466557 (Version 1)
Quarter: 2024Q1

REPORT INFORMATION
  Report Type: Spontaneous
  Country: US (occurrence: US)
  Receive Date: 20240201
  Receipt Date: 20240201
  Transmission Date: 20240410
  Serious: Yes (Life-Threatening, Hospitalization, Other)
  Sender: FDA-Public Use
  Company Number: US-EPICPHARMA-US-2024EPCLIT00182

PATIENT
  Age: 37 Year
  Sex: Male

DRUGS (19)
  1. LIDOCAINE HYDROCHLORIDE [Suspect]
     Active Substance: LIDOCAINE HYDROCHLORIDE
     Indication: Local anaesthesia
     Route: 065
  2. LIDOCAINE HYDROCHLORIDE [Suspect]
     Active Substance: LIDOCAINE HYDROCHLORIDE
     Route: 065
  3. MIDAZOLAM HYDROCHLORIDE [Suspect]
     Active Substance: MIDAZOLAM HYDROCHLORIDE
     Indication: Local anaesthesia
     Dosage: INITIALLY
     Route: 042
  4. MIDAZOLAM HYDROCHLORIDE [Suspect]
     Active Substance: MIDAZOLAM HYDROCHLORIDE
     Dosage: REPEATED 15 MINUTES AFTER THE FIRST DOSE
     Route: 042
  5. MIDAZOLAM HYDROCHLORIDE [Suspect]
     Active Substance: MIDAZOLAM HYDROCHLORIDE
     Dosage: FINAL
     Route: 042
  6. ARTICAINE [Suspect]
     Active Substance: ARTICAINE
     Indication: Local anaesthesia
     Route: 065
  7. ARTICAINE [Suspect]
     Active Substance: ARTICAINE
     Route: 065
  8. ARTICAINE [Suspect]
     Active Substance: ARTICAINE
     Route: 065
  9. EPINEPHRINE [Suspect]
     Active Substance: EPINEPHRINE
     Indication: Product used for unknown indication
     Route: 002
  10. EPINEPHRINE [Suspect]
     Active Substance: EPINEPHRINE
     Route: 002
  11. EPINEPHRINE [Suspect]
     Active Substance: EPINEPHRINE
     Route: 002
  12. EPINEPHRINE [Suspect]
     Active Substance: EPINEPHRINE
     Route: 002
  13. PROPOFOL [Suspect]
     Active Substance: PROPOFOL
     Indication: Product used for unknown indication
     Route: 065
  14. PROPOFOL [Suspect]
     Active Substance: PROPOFOL
     Route: 065
  15. SUCCINYLCHOLINE [Suspect]
     Active Substance: SUCCINYLCHOLINE
     Indication: Product used for unknown indication
     Route: 065
  16. OXYCODONE [Concomitant]
     Active Substance: OXYCODONE\OXYCODONE HYDROCHLORIDE
     Indication: Product used for unknown indication
     Route: 065
  17. DOCUSATE [Concomitant]
     Active Substance: DOCUSATE
     Indication: Product used for unknown indication
     Route: 065
  18. SENNA LEAF [Concomitant]
     Active Substance: SENNA LEAF
     Indication: Product used for unknown indication
     Route: 065
  19. SODIUM CHLORIDE [Concomitant]
     Active Substance: SODIUM CHLORIDE
     Indication: Product used for unknown indication
     Dosage: 200 ML/H
     Route: 065

REACTIONS (5)
  - Oxygen saturation decreased [Unknown]
  - Hyporesponsive to stimuli [Unknown]
  - Electrocardiogram ST segment elevation [Unknown]
  - Local anaesthetic systemic toxicity [Unknown]
  - Overdose [Unknown]
